FAERS Safety Report 5500602-5 (Version None)
Quarter: 2007Q4

REPORT INFORMATION
  Report Type: 
  Country: None (occurrence: None)
  Receive Date: 20071022
  Receipt Date: 20070821
  Transmission Date: 20080405
  Serious: Yes (Other)
  Sender: FDA-Public Use
  Company Number: SPV1-2007-03927

PATIENT
  Sex: Male

DRUGS (3)
  1. VYVANSE [Suspect]
     Dosage: 70 MG, 1X/DAY;QD, ORAL
     Route: 048
  2. EFFEXOR XR [Concomitant]
  3. LAMICTAL [Concomitant]

REACTIONS (6)
  - CONVULSION [None]
  - DEHYDRATION [None]
  - DRUG SCREEN POSITIVE [None]
  - OFF LABEL USE [None]
  - TRISMUS [None]
  - VISUAL ACUITY REDUCED [None]
